FAERS Safety Report 7539969-5 (Version None)
Quarter: 2011Q2

REPORT INFORMATION
  Report Type: 
  Country: None (occurrence: None)
  Receive Date: 20110610
  Receipt Date: 20110531
  Transmission Date: 20111010
  Serious: Yes (Other)
  Sender: FDA-Public Use
  Company Number: US-JNJFOC-20110600972

PATIENT
  Sex: Female
  Weight: 52.16 kg

DRUGS (6)
  1. BONIVA [Concomitant]
     Indication: OSTEOPOROSIS
     Route: 048
  2. POLY IRON [Concomitant]
     Indication: MINERAL SUPPLEMENTATION
  3. MOTRIN [Concomitant]
     Indication: PAIN
     Route: 048
     Dates: start: 19830101
  4. REMICADE [Suspect]
     Indication: RHEUMATOID ARTHRITIS
     Route: 042
     Dates: start: 20080101
  5. METHOTREXATE [Concomitant]
     Indication: ARTHRITIS
     Route: 058
  6. CALCIUM CARBONATE [Concomitant]
     Indication: MINERAL SUPPLEMENTATION
     Route: 048

REACTIONS (4)
  - FOOT DEFORMITY [None]
  - ARTHRITIS [None]
  - GASTROOESOPHAGEAL REFLUX DISEASE [None]
  - ANAEMIA [None]
